FAERS Safety Report 10283708 (Version 3)
Quarter: 2014Q3

REPORT INFORMATION
  Report Type: Report from Study
  Country: US (occurrence: US)
  Receive Date: 20140708
  Receipt Date: 20140807
  Transmission Date: 20150326
  Serious: Yes (Hospitalization)
  Sender: FDA-Public Use
  Company Number: US-PFIZER INC-2014185639

PATIENT
  Age: 10 Year
  Sex: Male
  Weight: 64.22 kg

DRUGS (3)
  1. SERTRALINE HCL [Suspect]
     Active Substance: SERTRALINE HYDROCHLORIDE
     Indication: ANXIETY DISORDER
     Dosage: 25 MG, 1X/DAY (25 MG ONE PILL PER DAY)
     Route: 048
     Dates: start: 20140417, end: 20140426
  2. SERTRALINE HCL [Suspect]
     Active Substance: SERTRALINE HYDROCHLORIDE
     Indication: OBSESSIVE-COMPULSIVE DISORDER
  3. SERTRALINE HCL [Suspect]
     Active Substance: SERTRALINE HYDROCHLORIDE
     Indication: DEPRESSION
     Dosage: 25 MG, 1X/DAY (25 MG ONE PILL PER DAY)
     Dates: start: 20140509, end: 20140515

REACTIONS (4)
  - Suicidal ideation [Unknown]
  - Hostility [Recovering/Resolving]
  - Suicidal behaviour [Unknown]
  - Anger [Recovering/Resolving]

NARRATIVE: CASE EVENT DATE: 20140426
